FAERS Safety Report 19490801 (Version 1)
Quarter: 2021Q3

REPORT INFORMATION
  Report Type: Spontaneous
  Country: GB (occurrence: GB)
  Receive Date: 20210705
  Receipt Date: 20210705
  Transmission Date: 20211014
  Serious: Yes (Disabling, Other)
  Sender: FDA-Public Use
  Company Number: GB-ORGANON-O2106GBR002569

PATIENT
  Age: 17 Year
  Sex: Female
  Weight: 63.5 kg

DRUGS (4)
  1. DESOGESTREL [Concomitant]
     Active Substance: DESOGESTREL
     Dosage: UNK
  2. DIAZEPAM. [Concomitant]
     Active Substance: DIAZEPAM
     Dosage: UNK
  3. DULOXETINE. [Concomitant]
     Active Substance: DULOXETINE
     Dosage: UNK
  4. ETONOGESTREL IMPLANT? UNKNOWN [Suspect]
     Active Substance: ETONOGESTREL
     Indication: CONTRACEPTION
     Dosage: 1 IMPLANT
     Route: 051
     Dates: start: 20180613, end: 20180813

REACTIONS (5)
  - Panic attack [Recovering/Resolving]
  - Eating disorder [Recovering/Resolving]
  - Heavy menstrual bleeding [Recovered/Resolved]
  - Anxiety [Recovering/Resolving]
  - Agoraphobia [Recovering/Resolving]

NARRATIVE: CASE EVENT DATE: 20180613
